FAERS Safety Report 19555612 (Version 1)
Quarter: 2021Q3

REPORT INFORMATION
  Report Type: Other
  Country: GB (occurrence: GB)
  Receive Date: 20210715
  Receipt Date: 20210715
  Transmission Date: 20211014
  Serious: Yes (Hospitalization, Disabling, Other)
  Sender: FDA-Public Use
  Company Number: GB-STRIDES ARCOLAB LIMITED-2021SP024875

PATIENT
  Age: 56 Year
  Sex: Male
  Weight: 60 kg

DRUGS (2)
  1. PREDNISOLONE. [Suspect]
     Active Substance: PREDNISOLONE
     Indication: PULMONARY SARCOIDOSIS
     Dosage: 30MG MAX 10MG MIN DAILY
     Route: 048
     Dates: start: 20200312, end: 20210624
  2. METHOTREXATE. [Concomitant]
     Active Substance: METHOTREXATE
     Indication: ILL-DEFINED DISORDER
     Dosage: UNK
     Route: 065

REACTIONS (3)
  - Medication error [Unknown]
  - Tendon rupture [Recovered/Resolved]
  - Adverse drug reaction [Recovered/Resolved]

NARRATIVE: CASE EVENT DATE: 20210425
